FAERS Safety Report 9378931 (Version 3)
Quarter: 2013Q3

REPORT INFORMATION
  Report Type: Spontaneous
  Country: US (occurrence: US)
  Receive Date: 20130702
  Receipt Date: 20130812
  Transmission Date: 20140515
  Serious: No
  Sender: FDA-Public Use
  Company Number: US-PFIZER INC-2013191548

PATIENT
  Age: 49 Year
  Sex: Female
  Weight: 60 kg

DRUGS (6)
  1. PREMPRO [Suspect]
     Indication: MENOPAUSE
     Dosage: 0.625-2.5 MG, 1X/DAY
     Route: 048
     Dates: start: 20130424
  2. PREMPRO [Suspect]
     Indication: MENOPAUSAL SYMPTOMS
     Dosage: 0.625-5 MG, 1XDAY
     Route: 048
  3. VAGIFEM [Suspect]
     Dosage: UNK, X 3 WEEKS (ON MONDAY, WEDNESDAY AND FRIDAY)
  4. COMBIPATCH [Concomitant]
     Indication: MENOPAUSAL SYMPTOMS
     Dosage: 1 DF, UNK (APPLY ONE PATCH TWICE WEEKLY)
     Dates: start: 20130401, end: 20130424
  5. ESTRACE [Concomitant]
     Indication: MENOPAUSE
     Dosage: 2 G, 2-3 TIMES/WEEK
     Route: 067
     Dates: start: 20130529
  6. ESTRACE [Concomitant]
     Indication: ATROPHIC VULVOVAGINITIS

REACTIONS (13)
  - Feeling drunk [Recovered/Resolved]
  - Dizziness [Recovered/Resolved]
  - Vomiting [Recovered/Resolved]
  - Breast tenderness [Unknown]
  - Muscle spasms [Unknown]
  - Pain [Unknown]
  - Pelvic pain [Unknown]
  - Mood swings [Unknown]
  - Insomnia [Unknown]
  - Dyspareunia [Unknown]
  - Feeling abnormal [Unknown]
  - Irritability [Unknown]
  - Feeling hot [Unknown]
